FAERS Safety Report 15570972 (Version 1)
Quarter: 2018Q4

REPORT INFORMATION
  Report Type: Spontaneous
  Country: TW (occurrence: TW)
  Receive Date: 20181031
  Receipt Date: 20181031
  Transmission Date: 20190205
  Serious: Yes (Death, Hospitalization)
  Sender: FDA-Public Use
  Company Number: TW-BAYER-2018-195149

PATIENT
  Age: 60 Year
  Sex: Male

DRUGS (5)
  1. PIPERACILLIN AND TAZOBACTAM [Suspect]
     Active Substance: PIPERACILLIN SODIUM\TAZOBACTAM SODIUM
     Indication: CELLULITIS
  2. CEFTRIAXONE. [Suspect]
     Active Substance: CEFTRIAXONE
     Indication: CELLULITIS
  3. CIPROXIN [Suspect]
     Active Substance: CIPROFLOXACIN
     Indication: CELLULITIS
  4. LEVOFLOXACIN. [Suspect]
     Active Substance: LEVOFLOXACIN
     Indication: CELLULITIS
  5. VANCOMYCIN [Suspect]
     Active Substance: VANCOMYCIN
     Indication: CELLULITIS

REACTIONS (8)
  - Sepsis [Fatal]
  - Pancreatitis acute [None]
  - Pneumonia [None]
  - Drug hypersensitivity [None]
  - Leukocytosis [None]
  - End stage renal disease [None]
  - Electrolyte imbalance [None]
  - Rash [None]
